FAERS Safety Report 4460858-7 (Version None)
Quarter: 2004Q3

REPORT INFORMATION
  Report Type: 
  Country: None (occurrence: None)
  Receive Date: 20040928
  Receipt Date: 20040505
  Transmission Date: 20050211
  Serious: No
  Sender: FDA-Public Use
  Company Number: US-GLAXOSMITHKLINE-A0509632A

PATIENT
  Sex: Female

DRUGS (6)
  1. ADVAIR DISKUS 100/50 [Suspect]
     Indication: ASTHMA
     Route: 055
  2. FLOVENT [Suspect]
     Indication: ASTHMA
     Route: 055
  3. FLOVENT [Suspect]
     Route: 055
  4. SEREVENT [Suspect]
     Indication: ASTHMA
     Route: 055
  5. SINGULAIR [Concomitant]
     Indication: ASTHMA
  6. PROTONIX [Concomitant]

REACTIONS (3)
  - CANDIDIASIS [None]
  - DIARRHOEA [None]
  - HOARSENESS [None]
